FAERS Safety Report 19295282 (Version 2)
Quarter: 2021Q2

REPORT INFORMATION
  Report Type: Spontaneous
  Country: US (occurrence: US)
  Receive Date: 20210524
  Receipt Date: 20210616
  Transmission Date: 20210717
  Serious: Yes (Other)
  Sender: FDA-Public Use
  Company Number: US-UCBSA-2021023095

PATIENT
  Age: 42 Year
  Sex: Male

DRUGS (1)
  1. CIMZIA [Suspect]
     Active Substance: CERTOLIZUMAB PEGOL
     Indication: PRODUCT USED FOR UNKNOWN INDICATION
     Dosage: 400 MILLIGRAM
     Route: 058
     Dates: start: 20210227, end: 20210501

REACTIONS (3)
  - Bell^s palsy [Recovered/Resolved]
  - COVID-19 immunisation [Unknown]
  - Vaccination complication [Recovered/Resolved]

NARRATIVE: CASE EVENT DATE: 20210331
